FAERS Safety Report 16338268 (Version 2)
Quarter: 2019Q2

REPORT INFORMATION
  Report Type: Spontaneous
  Country: US (occurrence: US)
  Receive Date: 20190521
  Receipt Date: 20190604
  Transmission Date: 20190711
  Serious: Yes (Hospitalization)
  Sender: FDA-Public Use
  Company Number: US-SUPERNUS PHARMACEUTICALS, INC.-2019SUP00322

PATIENT
  Age: 58 Year
  Sex: Female
  Weight: 75.51 kg

DRUGS (19)
  1. ENBREL [Concomitant]
     Active Substance: ETANERCEPT
  2. CRESTOR [Concomitant]
     Active Substance: ROSUVASTATIN CALCIUM
  3. VITAMIN D3 [Concomitant]
     Active Substance: CHOLECALCIFEROL
  4. MAGNESIUM [Concomitant]
     Active Substance: MAGNESIUM
  5. XOPENEX [Concomitant]
     Active Substance: LEVALBUTEROL HYDROCHLORIDE
     Dosage: UNK, AS NEEDED
  6. LASIX [Concomitant]
     Active Substance: FUROSEMIDE
  7. BIOTIN [Concomitant]
     Active Substance: BIOTIN
  8. TROKENDI XR [Suspect]
     Active Substance: TOPIRAMATE
     Indication: MIGRAINE PROPHYLAXIS
     Dosage: 50 MG, 1X/DAY
     Route: 048
     Dates: start: 2018, end: 2018
  9. PROBITOIC [Concomitant]
  10. BISOPROLOL [Concomitant]
     Active Substance: BISOPROLOL
  11. BREO ELLIPTA [Concomitant]
     Active Substance: FLUTICASONE FUROATE\VILANTEROL TRIFENATATE
  12. TROKENDI XR [Suspect]
     Active Substance: TOPIRAMATE
     Dosage: 100 MG, 1X/DAY
     Route: 048
     Dates: start: 20190503
  13. SPIRONOLACTONE. [Concomitant]
     Active Substance: SPIRONOLACTONE
  14. WARFARIN [Concomitant]
     Active Substance: WARFARIN
  15. VITAMIN B COMPLEX [Concomitant]
     Active Substance: CYANOCOBALAMIN\DEXPANTHENOL\NIACINAMIDE\PYRIDOXINE HYDROCHLORIDE\RIBOFLAVIN 5^-PHOSPHATE SODIUM\THIAMINE HYDROCHLORIDE\VITAMIN B COMPLEX
  16. POTASSIUM [Concomitant]
     Active Substance: POTASSIUM
  17. TROKENDI XR [Suspect]
     Active Substance: TOPIRAMATE
     Indication: MIGRAINE PROPHYLAXIS
     Dosage: 100 MG, 1X/DAY
     Route: 048
     Dates: start: 2018, end: 20190429
  18. SINGULAIR [Concomitant]
     Active Substance: MONTELUKAST SODIUM
  19. TYLENOL ARTHRITIS PAIN [Concomitant]
     Active Substance: ACETAMINOPHEN
     Dosage: UNK, AS NEEDED

REACTIONS (9)
  - Product dose omission [Not Recovered/Not Resolved]
  - Atrial flutter [Unknown]
  - Atrial fibrillation [Unknown]
  - Abdominal discomfort [None]
  - Vomiting [Unknown]
  - Hypertension [Unknown]
  - Nausea [None]
  - Ventricular tachycardia [Unknown]
  - Asthenia [Not Recovered/Not Resolved]

NARRATIVE: CASE EVENT DATE: 20190429
